FAERS Safety Report 7837353-8 (Version None)
Quarter: 2011Q4

REPORT INFORMATION
  Report Type: 
  Country: None (occurrence: None)
  Receive Date: 20111024
  Receipt Date: 20111020
  Transmission Date: 20120403
  Serious: Yes (Hospitalization, Other)
  Sender: FDA-Public Use
  Company Number: SE-BAYER-2011-102428

PATIENT
  Age: 92 Year
  Sex: Female

DRUGS (11)
  1. CLINDAMYCIN [Suspect]
     Dosage: UNK
     Dates: start: 20110701
  2. BEHEPAN [Concomitant]
  3. ALLOPURINOL [Concomitant]
  4. NIFEREX [Concomitant]
  5. FURIX RETARD [Concomitant]
  6. ALVEDON [Concomitant]
  7. CIPROFLOXACIN [Suspect]
     Dosage: UNK
     Dates: start: 20110701
  8. LEVOTHYROXINE SODIUM [Concomitant]
  9. OMEPRAZOLE [Concomitant]
  10. ENALAPRIL MALEATE [Concomitant]
  11. TRAMADOL HCL [Concomitant]

REACTIONS (1)
  - DIARRHOEA INFECTIOUS [None]
